FAERS Safety Report 5956214-2 (Version None)
Quarter: 2008Q4

REPORT INFORMATION
  Report Type: 
  Country: None (occurrence: None)
  Receive Date: 20081112
  Receipt Date: 20071015
  Transmission Date: 20090506
  Serious: Yes (Death, Hospitalization)
  Sender: FDA-Public Use
  Company Number: 2007US001786

PATIENT
  Age: 66 Year
  Sex: Male
  Weight: 86.2 kg

DRUGS (20)
  1. AMEVIVE [Suspect]
     Indication: PSORIASIS
     Dosage: 15 MG, WEEKLY, INTRAMUSCULAR
     Route: 030
  2. PRAVACHOL [Concomitant]
  3. LEVOXYL [Concomitant]
  4. METROPOLOL (METOPROLOL TARTRATE) [Concomitant]
  5. LEXAPROL (ESITALOPRAM OXALATE) [Concomitant]
  6. ARICEPT [Concomitant]
  7. GEMFIBROZIL [Concomitant]
  8. ALBUTEROL (SALBUTAMOL SULFATE) [Concomitant]
  9. SINGULAIR [Concomitant]
  10. TRAZODONE (TRAZODONE HYDROCHLORIDE) [Concomitant]
  11. ASPIRIN [Concomitant]
  12. FLEXERIL [Concomitant]
  13. POTASSIUM CHLORIDE [Concomitant]
  14. FUROSEMIDE [Concomitant]
  15. LANSOPRAZOLE [Concomitant]
  16. VANCOMYCIN HYDROCHLORIDE [Concomitant]
  17. CEFEPIME [Concomitant]
  18. INSULIN, REGULAR (INSULIN) [Concomitant]
  19. ROBITUSSIN DM (GUAIFENESIN) [Concomitant]
  20. OXYCODONE/APAP (OXYCODONE) [Concomitant]

REACTIONS (15)
  - ATELECTASIS [None]
  - BLOOD BICARBONATE INCREASED [None]
  - CARDIAC ARREST [None]
  - CORONARY ARTERY BYPASS [None]
  - FALL [None]
  - LUNG INFILTRATION [None]
  - LUNG OPERATION [None]
  - PERICARDIAL EFFUSION [None]
  - PLEURAL EFFUSION [None]
  - RESPIRATORY ARREST [None]
  - RESPIRATORY DISTRESS [None]
  - RESPIRATORY FAILURE [None]
  - TACHYCARDIA [None]
  - UNRESPONSIVE TO STIMULI [None]
  - WHITE BLOOD CELL COUNT INCREASED [None]
